FAERS Safety Report 9382895 (Version 2)
Quarter: 2014Q1

REPORT INFORMATION
  Report Type: Report from Study
  Country: DE (occurrence: DE)
  Receive Date: 20130703
  Receipt Date: 20140327
  Transmission Date: 20141002
  Serious: Yes (Hospitalization)
  Sender: FDA-Public Use
  Company Number: DE-BAXTER-2013BAX022606

PATIENT
  Age: 66 Year
  Sex: 0
  Weight: 80 kg

DRUGS (7)
  1. ADVATE 2000 I.E. [Suspect]
     Indication: FACTOR VIII DEFICIENCY
     Route: 042
  2. ADVATE 2000 I.E. [Suspect]
     Indication: PROPHYLAXIS
     Route: 042
     Dates: start: 20120109, end: 20120109
  3. ADVATE 2000 I.E. [Suspect]
     Route: 042
     Dates: start: 20120110, end: 20120111
  4. ADVATE 2000 I.E. [Suspect]
     Route: 042
     Dates: start: 20130112, end: 20130116
  5. ADVATE 2000 I.E. [Suspect]
     Route: 042
     Dates: start: 20120206, end: 20120206
  6. ADVATE 2000 I.E. [Suspect]
     Route: 042
     Dates: start: 20120207, end: 20120209
  7. ADVATE 2000 I.E. [Suspect]
     Dates: start: 20120210, end: 20120213

REACTIONS (1)
  - Cataract [Recovered/Resolved]
